FAERS Safety Report 9541764 (Version 1)
Quarter: 2013Q2

REPORT INFORMATION
  Report Type: Spontaneous
  Country: US (occurrence: None)
  Receive Date: 20130524
  Receipt Date: 20130524
  Transmission Date: 20140414
  Serious: No
  Sender: FDA-Public Use
  Company Number: PHEH2012US023947

PATIENT
  Age: 47 Year
  Sex: Female

DRUGS (2)
  1. GILENYA [Suspect]
     Route: 048
     Dates: start: 20121004, end: 20121205
  2. ANTIDEPRESSANTS (NO INGREDIENTS/SUBSTANCES) [Concomitant]
     Route: 048
     Dates: start: 20121004, end: 20121205

REACTIONS (8)
  - Amnesia [None]
  - Pain [None]
  - Depression [None]
  - Blood pressure increased [None]
  - Feeling abnormal [None]
  - Crying [None]
  - Apathy [None]
  - Somnolence [None]
